FAERS Safety Report 9468383 (Version 1)
Quarter: 2013Q3

REPORT INFORMATION
  Report Type: Spontaneous
  Country: US (occurrence: US)
  Receive Date: 20130821
  Receipt Date: 20130821
  Transmission Date: 20140515
  Serious: No
  Sender: FDA-Public Use
  Company Number: US-BAYER-2013-100629

PATIENT
  Age: 43 Year
  Sex: Male
  Weight: 113.38 kg

DRUGS (1)
  1. ALEVE CAPLET [Suspect]
     Indication: PAIN
     Dosage: 1 DF, PRN
     Route: 048
     Dates: start: 2011

REACTIONS (2)
  - Dyspepsia [Recovered/Resolved]
  - Dyspepsia [Recovered/Resolved]
